FAERS Safety Report 10368846 (Version 4)
Quarter: 2016Q1

REPORT INFORMATION
  Report Type: Spontaneous
  Country: US (occurrence: US)
  Receive Date: 20140807
  Receipt Date: 20160225
  Transmission Date: 20160525
  Serious: Yes (Other)
  Sender: FDA-Public Use
  Company Number: US-PFIZER INC-2014218381

PATIENT
  Age: 86 Year
  Sex: Female
  Weight: 70.3 kg

DRUGS (3)
  1. LYRICA [Suspect]
     Active Substance: PREGABALIN
     Indication: NEUROPATHY PERIPHERAL
  2. TRAMADOL. [Concomitant]
     Active Substance: TRAMADOL
     Indication: PAIN
     Dosage: UNK
  3. LYRICA [Suspect]
     Active Substance: PREGABALIN
     Indication: POST HERPETIC NEURALGIA
     Dosage: 50 MG, 6X/DAY
     Route: 048

REACTIONS (6)
  - Gait disturbance [Unknown]
  - Dysstasia [Unknown]
  - Arthralgia [Unknown]
  - Pain [Unknown]
  - Patella fracture [Unknown]
  - Ligament sprain [Unknown]
